FAERS Safety Report 17398657 (Version 1)
Quarter: 2020Q1

REPORT INFORMATION
  Report Type: Spontaneous
  Country: US (occurrence: US)
  Receive Date: 20200210
  Receipt Date: 20200210
  Transmission Date: 20200409
  Serious: No
  Sender: FDA-Public Use
  Company Number: US-VAYAPHARMA-2018-US-014730

PATIENT
  Age: 12 Year
  Sex: Male
  Weight: 32.66 kg

DRUGS (4)
  1. VAYARIN (NON-SPECIFIC) [Suspect]
     Active Substance: DOCONEXENT\ICOSAPENT\PHOSPHATIDYL SERINE
     Indication: ATTENTION DEFICIT/HYPERACTIVITY DISORDER
     Dosage: 1 CAP IN AM AND IN PM
     Route: 048
     Dates: start: 20180716, end: 20180821
  2. GUANFACINE. [Concomitant]
     Active Substance: GUANFACINE
  3. MULTIVITAMINS [Concomitant]
     Active Substance: VITAMINS
  4. 5-HTP [Concomitant]

REACTIONS (3)
  - Abnormal behaviour [Recovered/Resolved]
  - Hyperhidrosis [Recovered/Resolved]
  - Screaming [Recovered/Resolved]

NARRATIVE: CASE EVENT DATE: 20180821
